FAERS Safety Report 7677122-5 (Version None)
Quarter: 2011Q3

REPORT INFORMATION
  Report Type: 
  Country: None (occurrence: None)
  Receive Date: 20110811
  Receipt Date: 20110809
  Transmission Date: 20111222
  Serious: Yes (Death)
  Sender: FDA-Public Use
  Company Number: PL-ROCHE-795555

PATIENT
  Sex: Female
  Weight: 62 kg

DRUGS (1)
  1. XELODA [Suspect]
     Dosage: FOR 14 DAYS (6 CYCLES)
     Route: 048
     Dates: start: 20110209, end: 20110602

REACTIONS (1)
  - PANCREATITIS [None]
